FAERS Safety Report 6046174-0 (Version None)
Quarter: 2009Q1

REPORT INFORMATION
  Report Type: 
  Country: None (occurrence: None)
  Receive Date: 20090122
  Receipt Date: 20090114
  Transmission Date: 20090719
  Serious: Yes (Hospitalization)
  Sender: FDA-Public Use
  Company Number: JP-JNJFOC-20081200199

PATIENT
  Sex: Female

DRUGS (15)
  1. CRAVIT [Suspect]
     Indication: PHARYNGITIS
     Route: 048
  2. CRAVIT [Suspect]
     Indication: INFECTION
     Route: 048
  3. MUCOSOLVAN [Suspect]
     Indication: PHARYNGITIS
     Route: 048
  4. DASEN [Suspect]
     Indication: PHARYNGITIS
     Route: 048
  5. CRESTOR [Concomitant]
     Indication: HYPERLIPIDAEMIA
     Route: 048
  6. FERROMIA [Concomitant]
     Indication: IRON DEFICIENCY ANAEMIA
     Route: 048
  7. ACECOL [Concomitant]
     Indication: HYPERTENSION
     Route: 048
  8. NU-LOTAN [Concomitant]
     Indication: HYPERTENSION
     Route: 048
  9. AMLODIPINE [Concomitant]
     Indication: HYPERTENSION
     Route: 048
  10. PREDNISOLONE [Concomitant]
     Indication: RHEUMATOID ARTHRITIS
     Route: 048
  11. TAKEPRON [Concomitant]
     Indication: GASTRIC ULCER
     Route: 048
  12. ADALAT CC [Concomitant]
     Indication: HYPERTENSION
     Route: 048
  13. SODIUM BICARBONATE [Concomitant]
     Indication: RENAL FAILURE CHRONIC
     Route: 048
  14. LOXOPROFEN [Concomitant]
     Indication: RHEUMATOID ARTHRITIS
     Dosage: 1 DOSE FREQUENCY AT THE TIME OF SHARP PAIN
     Route: 048
  15. MYSLEE [Concomitant]
     Indication: INSOMNIA
     Dosage: 1 AT THE TIME OF EXPERIENCING SLEEPLESSNESS
     Route: 048

REACTIONS (6)
  - HALLUCINATION [None]
  - INCOHERENT [None]
  - OVERDOSE [None]
  - PSYCHIATRIC SYMPTOM [None]
  - RENAL IMPAIRMENT [None]
  - RESTLESSNESS [None]
